FAERS Safety Report 4367410-2 (Version None)
Quarter: 2004Q2

REPORT INFORMATION
  Report Type: 
  Country: None (occurrence: None)
  Receive Date: 20040528
  Receipt Date: 20040528
  Transmission Date: 20050107
  Serious: Yes (Hospitalization)
  Sender: FDA-Public Use
  Company Number: None

PATIENT
  Age: 75 Year
  Sex: Female
  Weight: 73.6 kg

DRUGS (3)
  1. DOCETAXEL [Suspect]
     Indication: NON-SMALL CELL LUNG CANCER
     Dosage: 132 MG Q 3 WEEKS IV
     Route: 042
     Dates: start: 20040513, end: 20040513
  2. IRESSA [Suspect]
     Indication: NON-SMALL CELL LUNG CANCER
     Dosage: 250 MG QD ORAL
     Route: 048
     Dates: start: 20040513, end: 20040521
  3. PREMARIN [Concomitant]

REACTIONS (1)
  - FEBRILE NEUTROPENIA [None]
